FAERS Safety Report 7283380-1 (Version None)
Quarter: 2011Q1

REPORT INFORMATION
  Report Type: 
  Country: None (occurrence: None)
  Receive Date: 20110209
  Receipt Date: 20100720
  Transmission Date: 20110831
  Serious: No
  Sender: FDA-Public Use
  Company Number: A0871405A

PATIENT
  Sex: Female

DRUGS (1)
  1. PAROXETINE HCL [Suspect]
     Indication: DEPRESSION
     Dosage: 10MG PER DAY
     Route: 048

REACTIONS (4)
  - ANTISOCIAL BEHAVIOUR [None]
  - CRYING [None]
  - PSYCHOMOTOR HYPERACTIVITY [None]
  - AMNESIA [None]
